FAERS Safety Report 10086430 (Version 2)
Quarter: 2014Q2

REPORT INFORMATION
  Report Type: Spontaneous
  Country: CH (occurrence: CH)
  Receive Date: 20140418
  Receipt Date: 20140430
  Transmission Date: 20141212
  Serious: Yes (Other)
  Sender: FDA-Public Use
  Company Number: CH-JNJFOC-20140405180

PATIENT
  Age: 72 Year
  Sex: Male

DRUGS (12)
  1. ZYTIGA [Suspect]
     Indication: PROSTATE CANCER METASTATIC
     Dosage: 250 MG 4 TIMES A TOTAL
     Route: 065
     Dates: start: 20131230, end: 20140114
  2. DUROGESIC [Concomitant]
     Route: 065
  3. PREDNISON [Concomitant]
     Route: 065
  4. NOVALGIN [Concomitant]
     Route: 065
  5. TARGIN [Concomitant]
     Route: 065
  6. IRFEN [Concomitant]
     Route: 065
  7. DAFALGAN [Concomitant]
     Route: 065
  8. CONCOR [Concomitant]
     Route: 065
  9. TOREM [Concomitant]
     Route: 065
  10. LISINOPRIL [Concomitant]
     Route: 065
  11. ZOLADEX [Concomitant]
     Route: 065
  12. XGEVA [Concomitant]
     Route: 065

REACTIONS (2)
  - Cardiac disorder [Unknown]
  - Oedema peripheral [Unknown]
